FAERS Safety Report 20551188 (Version 1)
Quarter: 2022Q1

REPORT INFORMATION
  Report Type: Report from Study
  Country: BE (occurrence: None)
  Receive Date: 20220304
  Receipt Date: 20220304
  Transmission Date: 20220423
  Serious: Yes (Hospitalization)
  Sender: FDA-Public Use
  Company Number: BE-ROCHE-3033570

PATIENT
  Age: 52 Year
  Sex: Female
  Weight: 76.5 kg

DRUGS (4)
  1. ATEZOLIZUMAB [Suspect]
     Active Substance: ATEZOLIZUMAB
     Indication: Triple negative breast cancer
     Dosage: DATE OF LAST DOSE ADMINISTERED PRIOR TO THE ONSET OF SERIOUS ADVERSE EVENT ON 07/FEB/2022.
     Route: 041
     Dates: start: 20211217
  2. BEVACIZUMAB [Suspect]
     Active Substance: BEVACIZUMAB
     Indication: Triple negative breast cancer
     Dosage: DATE OF LAST DOSE ADMINISTERED PRIOR TO THE ONSET OF SERIOUS ADVERSE EVENT ON 07/FEB/2022.
     Route: 042
     Dates: start: 20211217
  3. GEMCITABINE [Suspect]
     Active Substance: GEMCITABINE
     Indication: Triple negative breast cancer
     Dosage: DATE OF LAST DOSE ADMINISTERED PRIOR TO THE ONSET OF SERIOUS ADVERSE EVENT ON 07/FEB/2022.
     Route: 042
     Dates: start: 20211217
  4. CARBOPLATIN [Suspect]
     Active Substance: CARBOPLATIN
     Indication: Triple negative breast cancer
     Dosage: DATE OF LAST DOSE ADMINISTERED PRIOR TO THE ONSET OF SERIOUS ADVERSE EVENT ON 14/FEB/2022.?AUC 5 DAY
     Route: 042
     Dates: start: 20211217

REACTIONS (1)
  - Thrombocytopenia [Unknown]

NARRATIVE: CASE EVENT DATE: 20220221
